FAERS Safety Report 15346772 (Version 1)
Quarter: 2018Q3

REPORT INFORMATION
  Report Type: Spontaneous
  Country: DE (occurrence: DE)
  Receive Date: 20180904
  Receipt Date: 20180904
  Transmission Date: 20181010
  Serious: Yes (Other)
  Sender: FDA-Public Use
  Company Number: PHHY2015DE178183

PATIENT
  Age: 77 Year
  Sex: Female
  Weight: 68 kg

DRUGS (10)
  1. RIBAVIRIN. [Suspect]
     Active Substance: RIBAVIRIN
     Dosage: 1000 MG, QD
     Route: 048
     Dates: start: 20150310, end: 20150407
  2. RIBAVIRIN. [Suspect]
     Active Substance: RIBAVIRIN
     Dosage: 200 MG, UNK
     Route: 065
  3. LEDIPASVIR [Suspect]
     Active Substance: LEDIPASVIR
     Indication: CHRONIC HEPATITIS C
     Dosage: 1 OT(90/400 MG), QD
     Route: 048
     Dates: start: 20150310, end: 20150601
  4. MARCUMAR [Concomitant]
     Active Substance: PHENPROCOUMON
     Indication: PRODUCT USED FOR UNKNOWN INDICATION
     Dosage: UNK
     Route: 065
  5. GLIMEPIRID [Concomitant]
     Active Substance: GLIMEPIRIDE
     Indication: PRODUCT USED FOR UNKNOWN INDICATION
     Dosage: UNK
     Route: 065
  6. RIBAVIRIN. [Suspect]
     Active Substance: RIBAVIRIN
     Indication: CHRONIC HEPATITIS C
     Dosage: 800 MG, UNK
     Route: 065
  7. BISOPROLOL RATIOPHARM [Concomitant]
     Active Substance: BISOPROLOL
     Indication: PRODUCT USED FOR UNKNOWN INDICATION
     Dosage: 5 MG, UNK
     Route: 065
  8. HYDROCHLOROTHIAZIDE. [Concomitant]
     Active Substance: HYDROCHLOROTHIAZIDE
     Indication: PRODUCT USED FOR UNKNOWN INDICATION
     Dosage: UNK
     Route: 065
  9. RIBAVIRIN. [Suspect]
     Active Substance: RIBAVIRIN
     Dosage: 600 MG, UNK
     Route: 065
  10. DIGITOXIN [Concomitant]
     Active Substance: DIGITOXIN
     Indication: PRODUCT USED FOR UNKNOWN INDICATION
     Dosage: 0.07 MG, UNK
     Route: 065

REACTIONS (3)
  - Anaemia [Recovering/Resolving]
  - Fatigue [Recovering/Resolving]
  - Liver function test increased [Not Recovered/Not Resolved]

NARRATIVE: CASE EVENT DATE: 20150408
